FAERS Safety Report 16599388 (Version 2)
Quarter: 2019Q3

REPORT INFORMATION
  Report Type: Spontaneous
  Country: PT (occurrence: PT)
  Receive Date: 20190719
  Receipt Date: 20190723
  Transmission Date: 20191004
  Serious: Yes (Other)
  Sender: FDA-Public Use
  Company Number: PT-FERRINGPH-2019FE04365

PATIENT
  Age: 86 Year
  Sex: Male

DRUGS (1)
  1. FIRMAGON [Suspect]
     Active Substance: DEGARELIX ACETATE
     Indication: PROSTATE CANCER
     Dosage: UNK, MONTHLY
     Route: 065
     Dates: start: 201902

REACTIONS (6)
  - Loss of consciousness [Recovered/Resolved]
  - Hot flush [Recovered/Resolved]
  - Loss of consciousness [Recovered/Resolved]
  - Hot flush [Recovered/Resolved]
  - Asthenia [Recovered/Resolved]
  - Asthenia [Recovered/Resolved]

NARRATIVE: CASE EVENT DATE: 201903
